FAERS Safety Report 6253143-4 (Version None)
Quarter: 2009Q2

REPORT INFORMATION
  Report Type: 
  Country: None (occurrence: None)
  Receive Date: 20090629
  Receipt Date: 20090629
  Transmission Date: 20091009
  Serious: Yes (Death, Hospitalization)
  Sender: FDA-Public Use
  Company Number: None

PATIENT
  Age: 86 Year
  Sex: Female
  Weight: 56.6996 kg

DRUGS (2)
  1. METHOTREXATE 5 MGS [Suspect]
     Indication: RHEUMATOID ARTHRITIS
     Dosage: 1 1/2 TABS WEEKLY OTHER  2 DOSES
     Route: 050
     Dates: start: 20080409, end: 20080421
  2. PREDNISONE [Concomitant]

REACTIONS (3)
  - PAIN OF SKIN [None]
  - PULMONARY FIBROSIS [None]
  - RESPIRATORY ARREST [None]
